FAERS Safety Report 18809926 (Version 1)
Quarter: 2021Q1

REPORT INFORMATION
  Report Type: Spontaneous
  Country: DK (occurrence: DK)
  Receive Date: 20210129
  Receipt Date: 20210129
  Transmission Date: 20210419
  Serious: Yes (Other)
  Sender: FDA-Public Use
  Company Number: DK-MYLANLABS-2021M1004533

PATIENT
  Age: 53 Year
  Sex: Female

DRUGS (4)
  1. CETIRIZIN TEVA [Concomitant]
     Dosage: UNK
  2. DOLATRAMYL [Suspect]
     Active Substance: TRAMADOL
     Indication: PRODUCT USED FOR UNKNOWN INDICATION
     Dosage: 100 MILLIGRAM, TWICE A DAY
  3. GABAPENTIN. [Concomitant]
     Active Substance: GABAPENTIN
     Dosage: 600 MILLIGRAM, TID
  4. PAMOL [Concomitant]
     Active Substance: ACETAMINOPHEN
     Dosage: 2?4 TABLETS

REACTIONS (6)
  - Disturbance in attention [Recovered/Resolved]
  - Peripheral coldness [Recovered/Resolved]
  - Loss of consciousness [Unknown]
  - Pruritus [Recovered/Resolved]
  - Fatigue [Recovered/Resolved]
  - Drug ineffective [Recovered/Resolved]
